FAERS Safety Report 4354562-3 (Version None)
Quarter: 2004Q2

REPORT INFORMATION
  Report Type: 
  Country: None (occurrence: None)
  Receive Date: 20040506
  Receipt Date: 20040506
  Transmission Date: 20050107
  Serious: Yes (Hospitalization)
  Sender: FDA-Public Use
  Company Number: None

PATIENT
  Sex: Female
  Weight: 55.3388 kg

DRUGS (10)
  1. WARFARIN SODIUM [Suspect]
     Indication: ATRIAL FIBRILLATION
     Dosage: 2 MG / 2.5 MGALTERNATE ORAL
     Route: 048
     Dates: start: 20040101, end: 20040324
  2. WARFARIN SODIUM [Suspect]
     Indication: CARDIOVASCULAR DISORDER
     Dosage: 2 MG / 2.5 MGALTERNATE ORAL
     Route: 048
     Dates: start: 20040101, end: 20040324
  3. WARFARIN SODIUM [Suspect]
     Indication: CORONARY ARTERY ATHEROSCLEROSIS
     Dosage: 2 MG / 2.5 MGALTERNATE ORAL
     Route: 048
     Dates: start: 20040101, end: 20040324
  4. WARFARIN SODIUM [Suspect]
     Indication: HYPERTENSION
     Dosage: 2 MG / 2.5 MGALTERNATE ORAL
     Route: 048
     Dates: start: 20040101, end: 20040324
  5. ARICEPT [Suspect]
     Indication: DEMENTIA ALZHEIMER'S TYPE
     Dosage: 5 MG DAILY ORAL
     Route: 048
     Dates: start: 20040317, end: 20040325
  6. ALPRAZOLAM [Concomitant]
  7. PREVACID [Concomitant]
  8. LANOXIN [Concomitant]
  9. ATENOLOL [Concomitant]
  10. DILANTIN [Concomitant]

REACTIONS (1)
  - HAEMATOMA [None]
